FAERS Safety Report 12784092 (Version 2)
Quarter: 2016Q4

REPORT INFORMATION
  Report Type: Spontaneous
  Country: US (occurrence: US)
  Receive Date: 20160927
  Receipt Date: 20161012
  Transmission Date: 20170207
  Serious: No
  Sender: FDA-Public Use
  Company Number: US-GLAXOSMITHKLINE-US2016139894

PATIENT
  Age: 71 Year
  Sex: Male

DRUGS (12)
  1. GLIPIZIDE. [Concomitant]
     Active Substance: GLIPIZIDE
  2. BUPROPION. [Concomitant]
     Active Substance: BUPROPION
  3. ATORVASTATINE [Concomitant]
     Active Substance: ATORVASTATIN
  4. BREO ELLIPTA [Suspect]
     Active Substance: FLUTICASONE FUROATE\VILANTEROL TRIFENATATE
     Dosage: 1 PUFF(S), QD
  5. AMLODIPINE [Concomitant]
     Active Substance: AMLODIPINE BESYLATE
  6. BREO ELLIPTA [Suspect]
     Active Substance: FLUTICASONE FUROATE\VILANTEROL TRIFENATATE
     Indication: INCREASED UPPER AIRWAY SECRETION
     Dosage: 1 PUFF(S), BID
  7. GLUCOSAMINE [Concomitant]
     Active Substance: GLUCOSAMINE
  8. GEMFIBROZIL. [Concomitant]
     Active Substance: GEMFIBROZIL
  9. LISINOPRIL. [Concomitant]
     Active Substance: LISINOPRIL
  10. ASA [Concomitant]
     Active Substance: ASPIRIN
  11. CARVEDILOL. [Concomitant]
     Active Substance: CARVEDILOL
  12. IRON [Concomitant]
     Active Substance: IRON

REACTIONS (3)
  - Blood glucose increased [Not Recovered/Not Resolved]
  - Prescribed overdose [Unknown]
  - Drug ineffective [Unknown]

NARRATIVE: CASE EVENT DATE: 201609
